FAERS Safety Report 7530031-4 (Version None)
Quarter: 2011Q2

REPORT INFORMATION
  Report Type: 
  Country: None (occurrence: None)
  Receive Date: 20110607
  Receipt Date: 20110525
  Transmission Date: 20111010
  Serious: Yes (Other)
  Sender: FDA-Public Use
  Company Number: PHHY2011JP45410

PATIENT
  Age: 4 Year
  Sex: Male
  Weight: 57 kg

DRUGS (3)
  1. TEGRETOL [Suspect]
     Indication: EPILEPSY
  2. PHENYTOIN [Concomitant]
     Indication: EPILEPSY
  3. VALPROATE SODIUM [Concomitant]
     Indication: EPILEPSY

REACTIONS (3)
  - HEMIPLEGIA [None]
  - GAMMA-GLUTAMYLTRANSFERASE INCREASED [None]
  - INTRAVENTRICULAR HAEMORRHAGE [None]
